FAERS Safety Report 20449713 (Version 2)
Quarter: 2022Q1

REPORT INFORMATION
  Report Type: Spontaneous
  Country: US (occurrence: US)
  Receive Date: 20220209
  Receipt Date: 20220211
  Transmission Date: 20220424
  Serious: Yes (Disabling, Other)
  Sender: FDA-Public Use
  Company Number: US-PFIZER INC-202200175985

PATIENT
  Sex: Male

DRUGS (2)
  1. LYRICA [Suspect]
     Active Substance: PREGABALIN
     Indication: Neuralgia
     Dosage: 150 MG
  2. LYRICA [Suspect]
     Active Substance: PREGABALIN
     Dosage: 300 MG

REACTIONS (4)
  - Accident [Unknown]
  - Therapeutic product effect decreased [Unknown]
  - Swelling [Unknown]
  - Erythema [Unknown]
